FAERS Safety Report 7113072-0 (Version None)
Quarter: 2010Q4

REPORT INFORMATION
  Report Type: 
  Country: None (occurrence: None)
  Receive Date: 20101119
  Receipt Date: 20101111
  Transmission Date: 20110411
  Serious: Yes (Hospitalization, Other)
  Sender: FDA-Public Use
  Company Number: US-JNJFOC-20100707441

PATIENT
  Sex: Male

DRUGS (55)
  1. LEVAQUIN [Suspect]
     Indication: UPPER RESPIRATORY TRACT INFECTION
     Route: 048
  2. LEVAQUIN [Suspect]
     Route: 048
  3. LEVAQUIN [Suspect]
     Route: 048
  4. LEVAQUIN [Suspect]
     Route: 048
  5. LEVAQUIN [Suspect]
     Route: 048
  6. LEVAQUIN [Suspect]
     Route: 048
  7. LEVAQUIN [Suspect]
     Route: 048
  8. LEVAQUIN [Suspect]
     Route: 048
  9. LEVAQUIN [Suspect]
     Route: 048
  10. LEVAQUIN [Suspect]
     Indication: SINUSITIS
     Route: 048
  11. LEVAQUIN [Suspect]
     Route: 048
  12. LEVAQUIN [Suspect]
     Route: 048
  13. LEVAQUIN [Suspect]
     Route: 048
  14. LEVAQUIN [Suspect]
     Route: 048
  15. LEVAQUIN [Suspect]
     Route: 048
  16. LEVAQUIN [Suspect]
     Route: 048
  17. LEVAQUIN [Suspect]
     Route: 048
  18. LEVAQUIN [Suspect]
     Route: 048
  19. LEVAQUIN [Suspect]
     Indication: PHARYNGITIS
     Route: 048
  20. LEVAQUIN [Suspect]
     Route: 048
  21. LEVAQUIN [Suspect]
     Route: 048
  22. LEVAQUIN [Suspect]
     Route: 048
  23. LEVAQUIN [Suspect]
     Route: 048
  24. LEVAQUIN [Suspect]
     Route: 048
  25. LEVAQUIN [Suspect]
     Route: 048
  26. LEVAQUIN [Suspect]
     Route: 048
  27. LEVAQUIN [Suspect]
     Route: 048
  28. LEVAQUIN [Suspect]
     Indication: COLONOSCOPY
     Route: 048
  29. LEVAQUIN [Suspect]
     Route: 048
  30. LEVAQUIN [Suspect]
     Route: 048
  31. LEVAQUIN [Suspect]
     Route: 048
  32. LEVAQUIN [Suspect]
     Route: 048
  33. LEVAQUIN [Suspect]
     Route: 048
  34. LEVAQUIN [Suspect]
     Route: 048
  35. LEVAQUIN [Suspect]
     Route: 048
  36. LEVAQUIN [Suspect]
     Route: 048
  37. LEVAQUIN [Suspect]
     Indication: DIVERTICULITIS
     Route: 048
  38. LEVAQUIN [Suspect]
     Route: 048
  39. LEVAQUIN [Suspect]
     Route: 048
  40. LEVAQUIN [Suspect]
     Route: 048
  41. LEVAQUIN [Suspect]
     Route: 048
  42. LEVAQUIN [Suspect]
     Route: 048
  43. LEVAQUIN [Suspect]
     Route: 048
  44. LEVAQUIN [Suspect]
     Route: 048
  45. LEVAQUIN [Suspect]
     Route: 048
  46. PREDNISONE [Suspect]
     Indication: DIARRHOEA
     Route: 048
  47. PREDNISONE [Suspect]
     Route: 048
  48. PREDNISONE [Suspect]
     Indication: UPPER RESPIRATORY TRACT INFECTION
     Route: 048
  49. PREDNISONE [Suspect]
     Route: 048
  50. PREDNISONE [Suspect]
     Indication: SINUSITIS
     Route: 048
  51. PREDNISONE [Suspect]
     Route: 048
  52. PREDNISONE [Suspect]
     Indication: URINARY TRACT INFECTION
     Route: 048
  53. PREDNISONE [Suspect]
     Route: 048
  54. PREDNISONE [Suspect]
     Indication: DIVERTICULITIS
     Route: 048
  55. PREDNISONE [Suspect]
     Route: 048

REACTIONS (2)
  - MENISCUS LESION [None]
  - ROTATOR CUFF SYNDROME [None]
